FAERS Safety Report 16799598 (Version 3)
Quarter: 2019Q4

REPORT INFORMATION
  Report Type: Report from Study
  Country: HN (occurrence: HN)
  Receive Date: 20190912
  Receipt Date: 20191204
  Transmission Date: 20200122
  Serious: Yes (Hospitalization, Other)
  Sender: FDA-Public Use
  Company Number: PHHY2019HN212675

PATIENT
  Sex: Male
  Weight: 160 kg

DRUGS (2)
  1. VARTALON DUO [Concomitant]
     Indication: HIP FRACTURE
     Dosage: (DAILY SINCE 3 OR 4 MONTHS AGO)
     Route: 065
  2. EXFORGE HCT [Suspect]
     Active Substance: AMLODIPINE BESYLATE\HYDROCHLOROTHIAZIDE\VALSARTAN
     Indication: HYPERTENSION
     Dosage: 1 DF, (AMLODIPINE 10 MG, HYDROCHLOROTHIAZIDE 25 MG, VALSARTAN 320 MG) (4 YEARS APPROXIMATELY)
     Route: 065

REACTIONS (8)
  - Fall [Unknown]
  - Blood pressure abnormal [Unknown]
  - Blood glucose abnormal [Unknown]
  - Arthralgia [Unknown]
  - Back pain [Unknown]
  - Hip fracture [Unknown]
  - Gait disturbance [Unknown]
  - Diabetes mellitus [Unknown]
